FAERS Safety Report 15435677 (Version 1)
Quarter: 2018Q3

REPORT INFORMATION
  Report Type: Spontaneous
  Country: GB (occurrence: GB)
  Receive Date: 20180927
  Receipt Date: 20180927
  Transmission Date: 20181010
  Serious: Yes (Other)
  Sender: FDA-Public Use
  Company Number: GB-BEH-2018095090

PATIENT
  Age: 72 Year
  Sex: Male
  Weight: 93.9 kg

DRUGS (10)
  1. PRIVIGEN [Suspect]
     Active Substance: HUMAN IMMUNOGLOBULIN G
     Indication: IMMUNODEFICIENCY COMMON VARIABLE
     Dosage: 30 G, UNK
     Route: 051
     Dates: start: 20180903
  2. BEZAFIBRATE [Concomitant]
     Active Substance: BEZAFIBRATE
     Route: 065
  3. LANSOPRAZOLE. [Concomitant]
     Active Substance: LANSOPRAZOLE
     Route: 065
  4. DILTIAZEM HYDROCHLORIDE. [Concomitant]
     Active Substance: DILTIAZEM HYDROCHLORIDE
     Route: 065
  5. BUMETANIDE. [Concomitant]
     Active Substance: BUMETANIDE
     Route: 065
  6. ACETYLSALICYLIC ACID [Concomitant]
     Active Substance: ASPIRIN
     Route: 065
  7. UNIPHYLLIN CONTINUS [Concomitant]
     Active Substance: THEOPHYLLINE ANHYDROUS
     Route: 065
  8. LOSARTAN POTASSIUM. [Concomitant]
     Active Substance: LOSARTAN POTASSIUM
     Route: 065
  9. EZETIMIBE. [Concomitant]
     Active Substance: EZETIMIBE
     Route: 065
  10. FLIXOTIDE [Concomitant]
     Active Substance: FLUTICASONE PROPIONATE
     Dosage: INHALER
     Route: 065

REACTIONS (6)
  - Blood glucose increased [Unknown]
  - Pyrexia [Recovering/Resolving]
  - Dizziness [Recovering/Resolving]
  - Blood pressure increased [Unknown]
  - Malaise [Recovering/Resolving]
  - Fatigue [Recovering/Resolving]

NARRATIVE: CASE EVENT DATE: 20180903
